FAERS Safety Report 8723977 (Version 2)
Quarter: 2012Q4

REPORT INFORMATION
  Report Type: 
  Country: GR (occurrence: GR)
  Receive Date: 20120815
  Receipt Date: 20120905
  Transmission Date: 20130627
  Serious: Yes (Other)
  Sender: FDA-Public Use
  Company Number: GR-AMGEN-GRCSP2012031545

PATIENT
  Age: 58 Year
  Sex: Female

DRUGS (2)
  1. PROLIA [Suspect]
     Indication: OSTEOPOROSIS
     Dosage: 60 mg, q6mo
     Dates: start: 201204
  2. CALCIUM [Concomitant]

REACTIONS (3)
  - Skin induration [Recovered/Resolved]
  - Nodule [Recovered/Resolved]
  - Erythema [Recovered/Resolved]
